FAERS Safety Report 8080826-6 (Version None)
Quarter: 2012Q1

REPORT INFORMATION
  Report Type: 
  Country: None (occurrence: None)
  Receive Date: 20120130
  Receipt Date: 20120124
  Transmission Date: 20120608
  Serious: Yes (Hospitalization)
  Sender: FDA-Public Use
  Company Number: GB-ROCHE-1033407

PATIENT
  Sex: Female
  Weight: 100 kg

DRUGS (2)
  1. HYDROXYCHLOROQUINE SULFATE [Concomitant]
  2. MABTHERA [Suspect]
     Indication: RHEUMATOID ARTHRITIS
     Dates: start: 20110114

REACTIONS (1)
  - PLEURITIC PAIN [None]
